FAERS Safety Report 24575343 (Version 1)
Quarter: 2024Q4

REPORT INFORMATION
  Report Type: Spontaneous
  Country: AU (occurrence: AU)
  Receive Date: 20241104
  Receipt Date: 20241104
  Transmission Date: 20250114
  Serious: Yes (Hospitalization)
  Sender: PFIZER
  Company Number: AU-PFIZER INC-PV202400140320

PATIENT
  Age: 16 Year
  Sex: Female

DRUGS (6)
  1. SUNITINIB MALATE [Suspect]
     Active Substance: SUNITINIB MALATE
     Indication: Paraganglion neoplasm malignant
     Dosage: 50 MG, DAILY, FOUR CYCLES
  2. SUNITINIB MALATE [Suspect]
     Active Substance: SUNITINIB MALATE
     Dosage: 25 MG 14 DAYS OFF DRUG
  3. OCTREOTIDE [Concomitant]
     Active Substance: OCTREOTIDE
     Indication: Paraganglion neoplasm malignant
     Dosage: UNK,FOUR CYCLES
  4. OCTREOTIDE [Concomitant]
     Active Substance: OCTREOTIDE
     Indication: Metastatic neoplasm
  5. LUTETIUM OXODOTREOTIDE LU-177 [Concomitant]
     Active Substance: LUTETIUM OXODOTREOTIDE LU-177
     Indication: Metastatic neoplasm
     Dosage: UNK,FOUR CYCLES
  6. LUTETIUM OXODOTREOTIDE LU-177 [Concomitant]
     Active Substance: LUTETIUM OXODOTREOTIDE LU-177
     Indication: Paraganglion neoplasm malignant

REACTIONS (4)
  - Renal failure [Recovered/Resolved]
  - Ascites [Recovered/Resolved]
  - Pleural effusion [Recovered/Resolved]
  - Off label use [Unknown]
